FAERS Safety Report 4603105-5 (Version None)
Quarter: 2005Q1

REPORT INFORMATION
  Report Type: 
  Country: None (occurrence: None)
  Receive Date: 20050307
  Receipt Date: 20050221
  Transmission Date: 20050727
  Serious: Yes (Death, Hospitalization)
  Sender: FDA-Public Use
  Company Number: 2005-00107

PATIENT
  Age: 56 Year
  Sex: Male
  Weight: 63 kg

DRUGS (8)
  1. VELCADE [Suspect]
     Indication: MULTIPLE MYELOMA
     Dosage: 1.80 MG, INTRAVENOUS
     Route: 042
     Dates: start: 20041119, end: 20050111
  2. BISOPROLOL FUMARATE [Concomitant]
  3. PAMIDRONATE DISODIUM [Concomitant]
  4. ALLOPURINOL [Concomitant]
  5. TRAMADOL HCL [Concomitant]
  6. METOCLOPRAMIDE [Concomitant]
  7. RANITIDINE [Concomitant]
  8. PIPERACILLIN SODIUM W/TAZOBACTAM SODIUM [Concomitant]

REACTIONS (13)
  - ATRIAL FIBRILLATION [None]
  - BRONCHOPNEUMONIA [None]
  - CARDIAC FAILURE [None]
  - CARDIOPULMONARY FAILURE [None]
  - DISEASE PROGRESSION [None]
  - EPISTAXIS [None]
  - HAEMORRHAGE SUBCUTANEOUS [None]
  - HYPOPROTEINAEMIA [None]
  - HYPOTENSION [None]
  - LEUKOPENIA [None]
  - PLEURAL EFFUSION [None]
  - PULMONARY OEDEMA [None]
  - THROMBOCYTOPENIA [None]
